FAERS Safety Report 4970769-6 (Version None)
Quarter: 2006Q2

REPORT INFORMATION
  Report Type: 
  Country: None (occurrence: None)
  Receive Date: 20060406
  Receipt Date: 20060329
  Transmission Date: 20061013
  Serious: Yes (Life-Threatening)
  Sender: FDA-Public Use
  Company Number: 2005EU002384

PATIENT
  Sex: Male
  Weight: 1.5 kg

DRUGS (2)
  1. PROGRAF [Suspect]
     Indication: RENAL TRANSPLANT
     Dosage: 6.00 MG, UID/QD TRANSPLACENTAL
     Route: 064
     Dates: start: 20050101, end: 20051012
  2. IMURAN [Suspect]
     Indication: RENAL TRANSPLANT
     Dosage: 50.00 MG, UID/QD, TRANSPLACENTAL
     Route: 064
     Dates: start: 20050101, end: 20051012

REACTIONS (10)
  - BRONCHOPULMONARY DYSPLASIA [None]
  - CAESAREAN SECTION [None]
  - DRUG EXPOSURE DURING PREGNANCY [None]
  - HAEMODYNAMIC INSTABILITY [None]
  - HYPOXIA [None]
  - NEONATAL DISORDER [None]
  - NEONATAL RESPIRATORY DISTRESS SYNDROME [None]
  - OLIGURIA [None]
  - PNEUMOTHORAX [None]
  - PREMATURE BABY [None]
